FAERS Safety Report 4916503-7 (Version None)
Quarter: 2006Q1

REPORT INFORMATION
  Report Type: 
  Country: None (occurrence: None)
  Receive Date: 20060220
  Receipt Date: 20060209
  Transmission Date: 20060701
  Serious: Yes (Hospitalization, Other)
  Sender: FDA-Public Use
  Company Number: PHBS2006ES02152

PATIENT
  Age: 67 Year
  Sex: Male

DRUGS (3)
  1. ZOMETA [Suspect]
     Indication: MULTIPLE MYELOMA
     Dosage: 4 MG, QMO
     Route: 042
     Dates: start: 20040301, end: 20050901
  2. INTRON A [Concomitant]
     Indication: MULTIPLE MYELOMA
     Dosage: 9 IU, QW
     Route: 058
     Dates: start: 20040301, end: 20050901
  3. CALCIUM SANDOZ FORTE D [Concomitant]

REACTIONS (1)
  - TOOTH ABSCESS [None]
